FAERS Safety Report 15466730 (Version 2)
Quarter: 2018Q4

REPORT INFORMATION
  Report Type: Spontaneous
  Country: HR (occurrence: HR)
  Receive Date: 20181005
  Receipt Date: 20181102
  Transmission Date: 20190204
  Serious: Yes (Other)
  Sender: FDA-Public Use
  Company Number: HR-TEVA-2018-HR-961078

PATIENT
  Age: 35 Year
  Sex: Male
  Weight: 80 kg

DRUGS (4)
  1. SUBUTEX [Concomitant]
     Active Substance: BUPRENORPHINE HYDROCHLORIDE
     Indication: DRUG DEPENDENCE
     Dosage: 6 MILLIGRAM DAILY;
     Route: 060
     Dates: start: 20170123
  2. DULOKSETIN PLIVA [Suspect]
     Active Substance: DULOXETINE HYDROCHLORIDE
     Indication: NEURALGIA
     Dosage: 60 MILLIGRAM DAILY;
     Route: 048
     Dates: start: 2018, end: 2018
  3. CYMBALTA [Suspect]
     Active Substance: DULOXETINE HYDROCHLORIDE
     Indication: NEURALGIA
     Dosage: 60 MILLIGRAM DAILY;
     Route: 048
     Dates: start: 2018, end: 2018
  4. NORMABEL [Concomitant]
     Active Substance: DIAZEPAM
     Indication: GENERALISED ANXIETY DISORDER
     Dosage: 30 MILLIGRAM DAILY;
     Route: 048
     Dates: start: 20020915

REACTIONS (13)
  - Insomnia [Recovered/Resolved]
  - Affect lability [Recovered/Resolved]
  - Withdrawal syndrome [Recovered/Resolved]
  - Confusional state [Recovered/Resolved]
  - Sedation [Recovered/Resolved]
  - Somnolence [Recovered/Resolved]
  - Nausea [Recovered/Resolved]
  - Muscle twitching [Recovered/Resolved]
  - Influenza like illness [Recovered/Resolved]
  - Hyperhidrosis [Recovered/Resolved]
  - Pain [Recovered/Resolved]
  - Vomiting [Recovered/Resolved]
  - Paraesthesia [Recovered/Resolved]

NARRATIVE: CASE EVENT DATE: 2018
